FAERS Safety Report 9810653 (Version 1)
Quarter: 2014Q1

REPORT INFORMATION
  Report Type: Spontaneous
  Country: US (occurrence: US)
  Receive Date: 20140110
  Receipt Date: 20140110
  Transmission Date: 20141002
  Serious: Yes (Death)
  Sender: FDA-Public Use
  Company Number: US-SANOFI-AVENTIS-2013SA091554

PATIENT
  Age: 82 Year
  Sex: Male

DRUGS (2)
  1. PLAVIX [Suspect]
     Route: 065
  2. ELIQUIS [Suspect]
     Indication: ATRIAL FIBRILLATION
     Route: 065

REACTIONS (2)
  - Haemorrhage intracranial [Fatal]
  - Blood creatinine increased [Unknown]
